FAERS Safety Report 7553428-5 (Version None)
Quarter: 2011Q2

REPORT INFORMATION
  Report Type: 
  Country: None (occurrence: None)
  Receive Date: 20110617
  Receipt Date: 20110531
  Transmission Date: 20111010
  Serious: No
  Sender: FDA-Public Use
  Company Number: US-MYLANLABS-2011S1011362

PATIENT
  Age: 70 Year
  Sex: Female
  Weight: 89.36 kg

DRUGS (12)
  1. TOPIRAMATE [Suspect]
     Route: 048
     Dates: start: 20110501
  2. MICARDIS [Concomitant]
     Indication: BLOOD PRESSURE
  3. ATIVAN [Suspect]
     Route: 048
     Dates: start: 20110501
  4. HYDROCHLOROTHIAZIDE [Concomitant]
     Indication: FLUID RETENTION
  5. VITAMIN TAB [Concomitant]
  6. TOPIRAMATE [Suspect]
     Indication: CONVULSION
     Route: 048
     Dates: start: 20101101, end: 20110501
  7. DOMPERIDON /00498201/ [Concomitant]
  8. ROPINIROLE [Concomitant]
  9. ATIVAN [Suspect]
     Indication: CONVULSION
     Route: 048
     Dates: end: 20110501
  10. ASPIRIN [Concomitant]
     Indication: TRANSIENT ISCHAEMIC ATTACK
  11. ALLEGRA [Concomitant]
     Indication: MULTIPLE ALLERGIES
  12. PANTOPRAZOLE [Concomitant]
     Indication: ABDOMINAL PAIN UPPER

REACTIONS (5)
  - GAIT DISTURBANCE [None]
  - CONVULSION [None]
  - CONFUSIONAL STATE [None]
  - DRUG INEFFECTIVE [None]
  - SPEECH DISORDER [None]
